FAERS Safety Report 5028623-X (Version None)
Quarter: 2006Q2

REPORT INFORMATION
  Report Type: 
  Country: None (occurrence: None)
  Receive Date: 20060501
  Receipt Date: 20060127
  Transmission Date: 20061013
  Serious: No
  Sender: FDA-Public Use
  Company Number: 200611025US

PATIENT
  Age: 49 Year
  Sex: Male
  Weight: 77.27 kg

DRUGS (2)
  1. KETEK [Suspect]
     Indication: UPPER RESPIRATORY TRACT INFECTION
     Dates: start: 20060109, end: 20060113
  2. PREDNISONE [Suspect]

REACTIONS (1)
  - DIPLOPIA [None]
